FAERS Safety Report 9456954 (Version 1)
Quarter: 2013Q3

REPORT INFORMATION
  Report Type: Spontaneous
  Country: US (occurrence: US)
  Receive Date: 20130814
  Receipt Date: 20130814
  Transmission Date: 20140515
  Serious: Yes (Other)
  Sender: FDA-Public Use
  Company Number: US-AMGEN-USASP2013056016

PATIENT
  Sex: Female

DRUGS (1)
  1. ENBREL [Suspect]
     Dosage: UNK
     Route: 065

REACTIONS (7)
  - Rheumatoid arthritis [Unknown]
  - Nausea [Unknown]
  - Dizziness [Unknown]
  - Injection site reaction [Unknown]
  - Injection site pruritus [Unknown]
  - Injection site swelling [Unknown]
  - Injection site pain [Unknown]
